FAERS Safety Report 24572060 (Version 1)
Quarter: 2024Q4

REPORT INFORMATION
  Report Type: Spontaneous
  Country: FR (occurrence: FR)
  Receive Date: 20241101
  Receipt Date: 20241101
  Transmission Date: 20250115
  Serious: Yes (Hospitalization, Other)
  Sender: PAREXEL
  Company Number: FR-ZAMBON-202402896FRA

PATIENT

DRUGS (3)
  1. FOSFOMYCIN TROMETHAMINE [Suspect]
     Active Substance: FOSFOMYCIN TROMETHAMINE
     Indication: Urinary tract infection
     Dosage: UNK
     Route: 048
     Dates: start: 20240526, end: 20240526
  2. AZATHIOPRINE [Suspect]
     Active Substance: AZATHIOPRINE
     Indication: Sarcoidosis
     Dosage: 50 MG, BID
     Route: 048
     Dates: start: 20240502, end: 20240604
  3. FIDAXOMICIN [Suspect]
     Active Substance: FIDAXOMICIN
     Indication: Clostridium difficile colitis
     Dosage: UNK
     Route: 048
     Dates: start: 20240624, end: 20240703

REACTIONS (2)
  - Rash maculo-papular [Recovered/Resolved with Sequelae]
  - Rash maculo-papular [Recovering/Resolving]

NARRATIVE: CASE EVENT DATE: 20240528
